FAERS Safety Report 11867281 (Version 1)
Quarter: 2015Q4

REPORT INFORMATION
  Report Type: Spontaneous
  Country: JP (occurrence: JP)
  Receive Date: 20151224
  Receipt Date: 20151224
  Transmission Date: 20160305
  Serious: Yes (Hospitalization)
  Sender: FDA-Public Use
  Company Number: JP-PFIZER INC-2015295224

PATIENT
  Age: 64 Year
  Sex: Male
  Weight: 54.4 kg

DRUGS (7)
  1. INLYTA [Suspect]
     Active Substance: AXITINIB
     Indication: RENAL CANCER
     Dosage: 5 MG, 2X/DAY
     Route: 048
     Dates: start: 20150810, end: 20150813
  2. INLYTA [Suspect]
     Active Substance: AXITINIB
     Dosage: 9 MG, 1X/DAY
  3. INLYTA [Suspect]
     Active Substance: AXITINIB
     Dosage: 8 MG, 2X/DAY
     Dates: start: 20150826
  4. INLYTA [Suspect]
     Active Substance: AXITINIB
     Dosage: 7 MG, 2X/DAY
     Dates: start: 20150824
  5. INLYTA [Suspect]
     Active Substance: AXITINIB
     Dosage: 8 MG, 1X/DAY
     Dates: start: 20150901
  6. INLYTA [Suspect]
     Active Substance: AXITINIB
     Dosage: 10 MG, 2X/DAY
     Dates: start: 20150908
  7. INLYTA [Suspect]
     Active Substance: AXITINIB
     Dosage: 6 MG, 2X/DAY
     Route: 048
     Dates: start: 20150814, end: 20150823

REACTIONS (3)
  - Oedema [Recovering/Resolving]
  - Weight increased [Unknown]
  - Pain [Unknown]

NARRATIVE: CASE EVENT DATE: 20150817
